FAERS Safety Report 7874640-1 (Version None)
Quarter: 2011Q3

REPORT INFORMATION
  Report Type: 
  Country: None (occurrence: None)
  Receive Date: 20110929
  Receipt Date: 20100922
  Transmission Date: 20111222
  Serious: Yes (Other)
  Sender: FDA-Public Use
  Company Number: 008977

PATIENT
  Age: 14 Year
  Sex: Male
  Weight: 97 kg

DRUGS (10)
  1. ZANTAC /00550802/ [Concomitant]
  2. NYSTATIN [Concomitant]
  3. FLAGYL [Concomitant]
  4. KEPPRA [Suspect]
     Indication: CONVULSION
     Dosage: (UNKNOWN DOSE INTRAVENOUS (NOT OTHERWISE SPECIFIED))
     Route: 042
     Dates: start: 20100125
  5. LOVENOX [Concomitant]
  6. LISINOPRIL [Concomitant]
  7. TRAZODONE HYDROCHLORIDE [Concomitant]
  8. KEPPRA [Suspect]
     Indication: CONVULSION
     Dosage: (1 G BID ORAL)
     Route: 048
  9. ASPIRIN [Concomitant]
  10. PREVACID [Concomitant]

REACTIONS (1)
  - PANCREATITIS [None]
